FAERS Safety Report 15277468 (Version 1)
Quarter: 2018Q3

REPORT INFORMATION
  Report Type: Spontaneous
  Country: NO (occurrence: NO)
  Receive Date: 20180814
  Receipt Date: 20180814
  Transmission Date: 20181010
  Serious: Yes (Hospitalization)
  Sender: FDA-Public Use
  Company Number: NO-ASTRAZENECA-2018SF00358

PATIENT
  Age: 24 Year
  Sex: Female

DRUGS (1)
  1. SEROQUEL [Suspect]
     Active Substance: QUETIAPINE FUMARATE
     Indication: INSOMNIA
     Route: 048
     Dates: end: 201711

REACTIONS (1)
  - Idiopathic intracranial hypertension [Recovering/Resolving]

NARRATIVE: CASE EVENT DATE: 201706
